FAERS Safety Report 10785631 (Version 1)
Quarter: 2015Q1

REPORT INFORMATION
  Report Type: Spontaneous
  Country: US (occurrence: None)
  Receive Date: 20150209
  Receipt Date: 20150209
  Transmission Date: 20150721
  Serious: Yes (Other)
  Sender: FDA-Public Use
  Company Number: FK201500574

PATIENT
  Age: 66 Year
  Sex: Male

DRUGS (13)
  1. HYDROMORPHONE [Concomitant]
     Active Substance: HYDROMORPHONE
  2. AMANTADINE [Concomitant]
     Active Substance: AMANTADINE
  3. LANSOPRAZOLE. [Concomitant]
     Active Substance: LANSOPRAZOLE
  4. FENTANYL. [Concomitant]
     Active Substance: FENTANYL
  5. ETOMIDATE. [Concomitant]
     Active Substance: ETOMIDATE
  6. SEVOFLURANE. [Concomitant]
     Active Substance: SEVOFLURANE
  7. CARBIDOPA. [Concomitant]
     Active Substance: CARBIDOPA
  8. ENTACAPONE. [Concomitant]
     Active Substance: ENTACAPONE
  9. PROPOFOL. [Suspect]
     Active Substance: PROPOFOL
     Indication: GENERAL ANAESTHESIA
     Dosage: 80 MG ON INDUCTION, INTRAVENOUS (NOT OTHERWISE SPECIFIED)
     Route: 042
  10. VECURONIUM [Concomitant]
     Active Substance: VECURONIUM BROMIDE
  11. LEVODOPA [Concomitant]
     Active Substance: LEVODOPA
  12. MIDAZOLAM [Concomitant]
     Active Substance: MIDAZOLAM\MIDAZOLAM HYDROCHLORIDE
  13. CEFAZOLIN [Concomitant]
     Active Substance: CEFAZOLIN

REACTIONS (2)
  - Diabetes insipidus [None]
  - Blood pressure fluctuation [None]
